FAERS Safety Report 7424384-5 (Version None)
Quarter: 2011Q2

REPORT INFORMATION
  Report Type: 
  Country: None (occurrence: None)
  Receive Date: 20110419
  Receipt Date: 20110406
  Transmission Date: 20111010
  Serious: Yes (Hospitalization)
  Sender: FDA-Public Use
  Company Number: US-MYLANLABS-2011S1007505

PATIENT
  Age: 48 Year
  Sex: Female

DRUGS (2)
  1. AMITRIPTYLINE HCL [Suspect]
     Indication: OVERDOSE
     Route: 065
  2. DIPHENHYDRAMINE HCL [Suspect]
     Indication: OVERDOSE
     Route: 065

REACTIONS (3)
  - DELIRIUM [None]
  - ANTICHOLINERGIC SYNDROME [None]
  - OVERDOSE [None]
